FAERS Safety Report 16773145 (Version 1)
Quarter: 2019Q3

REPORT INFORMATION
  Report Type: Spontaneous
  Country: US (occurrence: US)
  Receive Date: 20190904
  Receipt Date: 20190904
  Transmission Date: 20191005
  Serious: Yes (Hospitalization, Other)
  Sender: FDA-Public Use
  Company Number: US-INDIVIOR EUROPE LIMITED-INDV-121347-2019

PATIENT
  Age: 2 Week
  Sex: Male

DRUGS (2)
  1. BUPRENORPHINE 8 MG [Suspect]
     Active Substance: BUPRENORPHINE
     Indication: DRUG USE DISORDER
     Dosage: 8 MILLIGRAM, BID
     Route: 064
  2. BUPRENORPHINE 8 MG [Suspect]
     Active Substance: BUPRENORPHINE
     Dosage: 8 MILLIGRAM, BID
     Route: 063

REACTIONS (7)
  - Exposure via breast milk [Recovered/Resolved]
  - Somnolence neonatal [Unknown]
  - Bradycardia neonatal [Recovering/Resolving]
  - Hypoglycaemia neonatal [Unknown]
  - Poor feeding infant [Unknown]
  - Foetal exposure during pregnancy [Recovered/Resolved]
  - Drug withdrawal syndrome neonatal [Unknown]
